FAERS Safety Report 4860036-3 (Version None)
Quarter: 2005Q4

REPORT INFORMATION
  Report Type: 
  Country: None (occurrence: None)
  Receive Date: 20051219
  Receipt Date: 20051209
  Transmission Date: 20060501
  Serious: Yes (Other)
  Sender: FDA-Public Use
  Company Number: US-ROCHE-428226

PATIENT
  Age: 41 Year
  Sex: Male
  Weight: 59 kg

DRUGS (6)
  1. PEGASYS [Suspect]
     Indication: HEPATITIS C
     Route: 058
     Dates: start: 20051208, end: 20051213
  2. COPEGUS [Suspect]
     Indication: HEPATITIS C
     Route: 048
     Dates: start: 20051208, end: 20051213
  3. DILANTIN [Concomitant]
     Route: 048
  4. NEURONTIN [Concomitant]
     Route: 048
  5. ALBUTEROL [Concomitant]
     Route: 048
  6. SPIRIVA [Concomitant]
     Dosage: DRUG REPORTED AS SPIRIBA.

REACTIONS (1)
  - CONVULSION [None]
